APPROVED DRUG PRODUCT: DIPYRIDAMOLE
Active Ingredient: DIPYRIDAMOLE
Strength: 5MG/ML
Dosage Form/Route: INJECTABLE;INJECTION
Application: A075769 | Product #001
Applicant: EUGIA PHARMA SPECIALITIES LTD
Approved: Nov 27, 2002 | RLD: No | RS: No | Type: DISCN